FAERS Safety Report 21524437 (Version 3)
Quarter: 2022Q4

REPORT INFORMATION
  Report Type: Spontaneous
  Country: US (occurrence: US)
  Receive Date: 20221029
  Receipt Date: 20221229
  Transmission Date: 20230113
  Serious: No
  Sender: FDA-Public Use
  Company Number: US-NOVARTISTESTPH-NVSC2022US244035

PATIENT
  Age: 19 Year
  Sex: Female

DRUGS (2)
  1. TAFINLAR [Suspect]
     Active Substance: DABRAFENIB MESYLATE
     Indication: Brain neoplasm
     Dosage: 150 MG, Q12H (BY MOUTH)
     Route: 048
     Dates: start: 20221004
  2. MEKINIST [Suspect]
     Active Substance: TRAMETINIB DIMETHYL SULFOXIDE
     Indication: Brain neoplasm
     Dosage: 2 MG, QD (BY MOUTH)
     Route: 048
     Dates: start: 20221004

REACTIONS (9)
  - Illness [Unknown]
  - Feeding disorder [Unknown]
  - Dysgeusia [Unknown]
  - Pyrexia [Unknown]
  - Nausea [Unknown]
  - Contusion [Unknown]
  - Diarrhoea [Unknown]
  - Product dose omission issue [Unknown]
  - Product use in unapproved indication [Unknown]

NARRATIVE: CASE EVENT DATE: 20221005
